FAERS Safety Report 15981266 (Version 1)
Quarter: 2019Q1

REPORT INFORMATION
  Report Type: Spontaneous
  Country: US (occurrence: US)
  Receive Date: 20190219
  Receipt Date: 20190219
  Transmission Date: 20190418
  Serious: Yes (Hospitalization, Other)
  Sender: FDA-Public Use
  Company Number: US-TOLMAR, INC.-TOLG20190088

PATIENT
  Age: 49 Year
  Sex: Female

DRUGS (3)
  1. METRONIDAZOLE. [Suspect]
     Active Substance: METRONIDAZOLE
     Dosage: 500 MG
     Route: 042
  2. METRONIDAZOLE. [Suspect]
     Active Substance: METRONIDAZOLE
     Indication: BACTERIAL VAGINOSIS
     Dosage: 500 MG
     Route: 048
  3. IBUPROFEN. [Concomitant]
     Active Substance: IBUPROFEN
     Indication: MYALGIA
     Dosage: UNKNOWN
     Route: 065

REACTIONS (12)
  - Aplastic anaemia [Recovering/Resolving]
  - Pancytopenia [Recovering/Resolving]
  - Bone marrow failure [Recovering/Resolving]
  - Necrosis [Recovering/Resolving]
  - Hypophagia [Recovering/Resolving]
  - Streptococcal bacteraemia [Recovering/Resolving]
  - Oropharyngeal pain [Recovering/Resolving]
  - Tonsillitis [Recovering/Resolving]
  - Fatigue [Recovering/Resolving]
  - Chills [Recovering/Resolving]
  - Dysphagia [Recovering/Resolving]
  - Incorrect product administration duration [None]
